FAERS Safety Report 15196033 (Version 3)
Quarter: 2018Q3

REPORT INFORMATION
  Report Type: Report from Study
  Country: IT (occurrence: IT)
  Receive Date: 20180725
  Receipt Date: 20180905
  Transmission Date: 20181010
  Serious: Yes (Death)
  Sender: FDA-Public Use
  Company Number: IT-IPSEN BIOPHARMACEUTICALS, INC.-2018-10689

PATIENT
  Age: 75 Year
  Sex: Male
  Weight: 82 kg

DRUGS (14)
  1. TEMOZOLOMIDE. [Suspect]
     Active Substance: TEMOZOLOMIDE
     Indication: NEUROENDOCRINE TUMOUR OF THE LUNG
     Dosage: 5 TABLETS/28 DAYS
     Route: 048
     Dates: start: 20180301
  2. METFORMINA [Concomitant]
     Active Substance: METFORMIN HYDROCHLORIDE
     Route: 048
  3. ALLOPURINOLO [Concomitant]
     Active Substance: ALLOPURINOL
     Route: 048
  4. DIAMICRON [Concomitant]
     Active Substance: GLICLAZIDE
     Route: 048
  5. PARIET [Concomitant]
     Active Substance: RABEPRAZOLE SODIUM
     Route: 048
  6. FUROSEMIDE. [Concomitant]
     Active Substance: FUROSEMIDE
     Route: 048
  7. METOPROLOLO [Concomitant]
     Dosage: 100 MG + 50 MG
     Route: 048
  8. CARDIOASA [Concomitant]
     Route: 048
  9. LANREOTIDE AUTOGEL [Suspect]
     Active Substance: LANREOTIDE
     Indication: LUNG NEOPLASM MALIGNANT
  10. TEMOZOLOMIDE. [Suspect]
     Active Substance: TEMOZOLOMIDE
     Indication: LUNG NEOPLASM MALIGNANT
  11. ATORVASTATINA [Concomitant]
     Active Substance: ATORVASTATIN
     Route: 048
  12. SANCUSO [Concomitant]
     Active Substance: GRANISETRON
     Dates: start: 20180718
  13. LANREOTIDE AUTOGEL [Suspect]
     Active Substance: LANREOTIDE
     Indication: NEUROENDOCRINE TUMOUR OF THE LUNG
     Dosage: 120 MG
     Route: 058
     Dates: start: 20180301
  14. CANDESARTAN. [Concomitant]
     Active Substance: CANDESARTAN
     Route: 048

REACTIONS (1)
  - Death [Fatal]

NARRATIVE: CASE EVENT DATE: 20180718
